FAERS Safety Report 9440479 (Version 2)
Quarter: 2013Q4

REPORT INFORMATION
  Report Type: Spontaneous
  Country: US (occurrence: None)
  Receive Date: 20130801
  Receipt Date: 20131101
  Transmission Date: 20140711
  Serious: Yes (Death, Other)
  Sender: FDA-Public Use
  Company Number: 20130347

PATIENT
  Age: 49 Year
  Sex: Male
  Weight: 120 kg

DRUGS (5)
  1. VENOFER [Suspect]
     Route: 042
     Dates: start: 20110525, end: 20110525
  2. GRANUFLO [Suspect]
     Indication: PRODUCT USED FOR UNKNOWN INDICATION
     Dosage: UNKNOWN
  3. HEPARIN-PORK [Concomitant]
  4. ACETAMINOPHEN [Concomitant]
  5. ZEMPLAR [Concomitant]

REACTIONS (5)
  - Cardiovascular disorder [None]
  - Blood pressure decreased [None]
  - Unresponsive to stimuli [None]
  - Resuscitation [None]
  - Arrhythmia [None]
